FAERS Safety Report 19496167 (Version 1)
Quarter: 2021Q3

REPORT INFORMATION
  Report Type: Spontaneous
  Country: US (occurrence: US)
  Receive Date: 20210702
  Receipt Date: 20210702
  Transmission Date: 20211014
  Serious: No
  Sender: FDA-Public Use
  Company Number: None

PATIENT
  Age: 65 Year
  Sex: Male
  Weight: 107.55 kg

DRUGS (7)
  1. PREDNISONE 5 MG TABLET [Concomitant]
     Active Substance: PREDNISONE
  2. AMLODIPINE BESYLATE. [Concomitant]
     Active Substance: AMLODIPINE BESYLATE
  3. MULTIPLE VIT/MINERALS/NO IRON [Concomitant]
  4. ABIRATERONE. [Suspect]
     Active Substance: ABIRATERONE ACETATE
     Indication: PROSTATE CANCER
     Route: 048
     Dates: start: 20210415
  5. LUPRON DEPOT (6?MONTH) [Concomitant]
  6. LOSARTAN POTASSIUM. [Concomitant]
     Active Substance: LOSARTAN POTASSIUM
  7. FISH OIL CONCENTRATE [Concomitant]
     Active Substance: FISH OIL

REACTIONS (3)
  - Blood urine present [None]
  - Abdominal pain [None]
  - Thrombosis [None]

NARRATIVE: CASE EVENT DATE: 20210702
